FAERS Safety Report 20439726 (Version 13)
Quarter: 2024Q1

REPORT INFORMATION
  Report Type: Report from Study
  Country: DO (occurrence: DO)
  Receive Date: 20220207
  Receipt Date: 20240307
  Transmission Date: 20240410
  Serious: Yes (Other)
  Sender: FDA-Public Use
  Company Number: DO-NOVARTISPH-NVSC2020DO224383

PATIENT
  Age: 52 Year
  Sex: Female

DRUGS (6)
  1. KISQALI [Suspect]
     Active Substance: RIBOCICLIB
     Indication: Breast cancer
     Dosage: 200 MG
     Route: 048
  2. KISQALI [Suspect]
     Active Substance: RIBOCICLIB
     Dosage: 600 MG, QD
     Route: 048
     Dates: start: 20200629
  3. KISQALI [Suspect]
     Active Substance: RIBOCICLIB
     Dosage: 600 MG, QD
     Route: 048
     Dates: start: 20200719
  4. KISQALI [Suspect]
     Active Substance: RIBOCICLIB
     Dosage: 600 MG, QD
     Route: 048
     Dates: start: 20200727
  5. KISQALI [Suspect]
     Active Substance: RIBOCICLIB
     Dosage: 600 MG, QD
     Route: 048
     Dates: start: 20200729
  6. KISQALI [Suspect]
     Active Substance: RIBOCICLIB
     Dosage: 600 MG, QD (3 YEARS AGO)
     Route: 065
     Dates: start: 2020

REACTIONS (40)
  - Asphyxia [Unknown]
  - Metastases to liver [Unknown]
  - Cerebrovascular accident [Unknown]
  - Pain [Unknown]
  - Palpitations [Unknown]
  - Musculoskeletal chest pain [Unknown]
  - Decreased immune responsiveness [Unknown]
  - Gastrointestinal pain [Unknown]
  - Abdominal distension [Recovering/Resolving]
  - Breast pain [Unknown]
  - Neck mass [Unknown]
  - Feeling abnormal [Unknown]
  - Affective disorder [Unknown]
  - Somnolence [Unknown]
  - Chest pain [Unknown]
  - Arthralgia [Unknown]
  - Influenza [Unknown]
  - Oropharyngeal pain [Unknown]
  - Muscle spasms [Unknown]
  - Pain in extremity [Unknown]
  - Sleep disorder [Unknown]
  - Skin discolouration [Unknown]
  - Eating disorder [Unknown]
  - Nervousness [Unknown]
  - General physical health deterioration [Unknown]
  - Neck pain [Unknown]
  - Dysstasia [Unknown]
  - Depression [Unknown]
  - Abdominal pain upper [Unknown]
  - Madarosis [Unknown]
  - Fatigue [Unknown]
  - Dizziness [Unknown]
  - Dry skin [Unknown]
  - Back pain [Unknown]
  - Asthenia [Unknown]
  - Headache [Not Recovered/Not Resolved]
  - Platelet count decreased [Unknown]
  - Bone pain [Not Recovered/Not Resolved]
  - Product availability issue [Unknown]
  - Tongue movement disturbance [Unknown]

NARRATIVE: CASE EVENT DATE: 20200729
